FAERS Safety Report 11560384 (Version 1)
Quarter: 2015Q3

REPORT INFORMATION
  Report Type: Spontaneous
  Country: US (occurrence: US)
  Receive Date: 20150916
  Receipt Date: 20150916
  Transmission Date: 20151125
  Serious: No
  Sender: FDA-Public Use
  Company Number: US-ELI_LILLY_AND_COMPANY-US200809005107

PATIENT
  Age: 61 Year
  Sex: Female

DRUGS (5)
  1. CALCIUM CARBONATE W/VITAMIN D NOS [Concomitant]
     Active Substance: CALCIUM CARBONATE\VITAMIN D
     Dosage: 600 MG, 3/D
  2. POTASSIUM [Concomitant]
     Active Substance: POTASSIUM
  3. BAYER ASPIRIN [Concomitant]
     Active Substance: ASPIRIN
     Indication: ARTHRITIS
  4. FORTEO [Suspect]
     Active Substance: TERIPARATIDE
     Indication: OSTEOPOROSIS
     Dosage: 20 UG, DAILY (1/D)
     Dates: start: 20080919
  5. BUFFERIN [Concomitant]
     Active Substance: ASPIRIN
     Indication: ARTHRITIS

REACTIONS (5)
  - Muscular weakness [Not Recovered/Not Resolved]
  - Overdose [Not Recovered/Not Resolved]
  - Somnolence [Not Recovered/Not Resolved]
  - Nasopharyngitis [Not Recovered/Not Resolved]
  - Asthenia [Not Recovered/Not Resolved]

NARRATIVE: CASE EVENT DATE: 20080922
